FAERS Safety Report 8583398-2 (Version None)
Quarter: 2012Q3

REPORT INFORMATION
  Report Type: 
  Country: None (occurrence: None)
  Receive Date: 20120809
  Receipt Date: 20120727
  Transmission Date: 20120928
  Serious: Yes (Death)
  Sender: FDA-Public Use
  Company Number: GB-WATSON-2012-09521

PATIENT
  Age: 40 Year
  Sex: Male
  Weight: 104 kg

DRUGS (11)
  1. DIAZEPAM [Concomitant]
     Indication: ANXIETY
     Dosage: 2 MG, PRN
     Route: 048
     Dates: start: 20111019
  2. METHADONE HYDROCHLORIDE [Suspect]
     Dosage: 45 MG, TWICE A DAY
     Route: 048
     Dates: start: 20111025
  3. MULTIVITAMIN                       /00097801/ [Concomitant]
     Indication: PRODUCT USED FOR UNKNOWN INDICATION
     Dosage: UNKNOWN
     Route: 065
  4. CLARITHROMYCIN [Suspect]
     Indication: LOWER RESPIRATORY TRACT INFECTION
     Dosage: 500 MG, BID
     Route: 048
     Dates: start: 20111028
  5. METHADONE HYDROCHLORIDE [Suspect]
     Indication: PAIN
     Dosage: 35 ML, BID
     Route: 048
     Dates: start: 20111028, end: 20111030
  6. LANSOPRAZOLE [Concomitant]
     Indication: GASTRITIS
     Dosage: 30 MG, DAILY
     Route: 048
     Dates: start: 20111019
  7. ORAMORPH SR [Concomitant]
     Indication: CROHN'S DISEASE
     Dosage: 100 MG, DAILY
     Route: 048
     Dates: start: 20110707, end: 20111025
  8. HUMIRA [Concomitant]
     Indication: CROHN'S DISEASE
     Dosage: 40 MG, 1/WEEK
     Route: 030
     Dates: start: 20111005
  9. VENTOLIN [Concomitant]
     Indication: PRODUCT USED FOR UNKNOWN INDICATION
     Dosage: UNKNOWN
     Route: 065
  10. METHADONE HYDROCHLORIDE [Suspect]
     Dosage: 40 ML, BID
     Route: 048
     Dates: start: 20111027
  11. ADCAL D3 [Concomitant]
     Indication: CROHN'S DISEASE
     Dosage: 1 DF DOSAGE FORM TWICE A DAY
     Route: 048
     Dates: start: 20110808

REACTIONS (22)
  - INHIBITORY DRUG INTERACTION [None]
  - MALAISE [None]
  - SOMNOLENCE [None]
  - DEATH [None]
  - VOMITING [None]
  - DYSURIA [None]
  - HICCUPS [None]
  - BLOOD URINE [None]
  - OROPHARYNGEAL PAIN [None]
  - C-REACTIVE PROTEIN INCREASED [None]
  - RECTAL HAEMORRHAGE [None]
  - TOXICITY TO VARIOUS AGENTS [None]
  - ERYTHEMA [None]
  - DIFFUSE ALVEOLAR DAMAGE [None]
  - DYSARTHRIA [None]
  - WHITE BLOOD CELL COUNT INCREASED [None]
  - TREMOR [None]
  - CROHN'S DISEASE [None]
  - HEADACHE [None]
  - HEART RATE INCREASED [None]
  - HYPERHIDROSIS [None]
  - PHARYNGEAL ERYTHEMA [None]
